FAERS Safety Report 13390287 (Version 2)
Quarter: 2017Q2

REPORT INFORMATION
  Report Type: Spontaneous
  Country: DE (occurrence: DE)
  Receive Date: 20170331
  Receipt Date: 20170404
  Transmission Date: 20170830
  Serious: Yes (Death, Other)
  Sender: FDA-Public Use
  Company Number: PHHY2017DE048498

PATIENT
  Age: 74 Year

DRUGS (1)
  1. GLIVEC [Suspect]
     Active Substance: IMATINIB MESYLATE
     Indication: CHRONIC MYELOID LEUKAEMIA
     Dosage: 400 MG, QD (DAILY)
     Route: 048

REACTIONS (5)
  - Myelodysplastic syndrome [Unknown]
  - Chromosome analysis abnormal [Unknown]
  - Haemorrhage [Fatal]
  - Myocardial infarction [Unknown]
  - Embolism [Fatal]
